FAERS Safety Report 23972027 (Version 2)
Quarter: 2024Q2

REPORT INFORMATION
  Report Type: Report from Study
  Country: US (occurrence: US)
  Receive Date: 20240613
  Receipt Date: 20240614
  Transmission Date: 20240716
  Serious: No
  Sender: FDA-Public Use
  Company Number: US-BIOVITRUM-2024-US-008516

PATIENT
  Age: 52 Year
  Sex: Female

DRUGS (1)
  1. KINERET [Suspect]
     Active Substance: ANAKINRA
     Indication: Rheumatoid arthritis
     Dosage: DAILY
     Route: 058
     Dates: start: 20240429

REACTIONS (5)
  - Drug hypersensitivity [Unknown]
  - Erythema [Unknown]
  - Pruritus [Unknown]
  - Lichenification [Unknown]
  - Rash [Unknown]
